FAERS Safety Report 5454052-0 (Version None)
Quarter: 2007Q3

REPORT INFORMATION
  Report Type: 
  Country: None (occurrence: None)
  Receive Date: 20070917
  Receipt Date: 20070228
  Transmission Date: 20080115
  Serious: No
  Sender: FDA-Public Use
  Company Number: US-ASTRAZENECA-2006UW05523

PATIENT
  Sex: Female
  Weight: 121.4 kg

DRUGS (3)
  1. SEROQUEL [Suspect]
     Indication: SCHIZOPHRENIA
     Dosage: APPROX. 100 MG
     Route: 048
     Dates: start: 20030101, end: 20050401
  2. SEROQUEL [Suspect]
     Indication: INSOMNIA
     Dosage: APPROX. 100 MG
     Route: 048
     Dates: start: 20030101, end: 20050401
  3. ABILIFY [Concomitant]
     Dates: start: 20050401

REACTIONS (2)
  - DIABETES MELLITUS [None]
  - LETHARGY [None]
